FAERS Safety Report 18756281 (Version 1)
Quarter: 2021Q1

REPORT INFORMATION
  Report Type: Spontaneous
  Country: US (occurrence: US)
  Receive Date: 20210116
  Receipt Date: 20210116
  Transmission Date: 20210419
  Serious: Yes (Disabling)
  Sender: FDA-Public Use
  Company Number: None

PATIENT
  Age: 85 Year
  Sex: Female
  Weight: 59.7 kg

DRUGS (1)
  1. POTASSIUM CHLORIDE IN DEXTROSE AND SODIUM CHLORIDE [Suspect]
     Active Substance: DEXTROSE\DEXTROSE MONOHYDRATE\POTASSIUM CHLORIDE\SODIUM CHLORIDE
     Indication: DEHYDRATION
     Dosage: ?          OTHER FREQUENCY:ONCE;?
     Route: 041

REACTIONS (4)
  - Blood potassium increased [None]
  - Atrial flutter [None]
  - Atrial fibrillation [None]
  - Ventricular tachycardia [None]

NARRATIVE: CASE EVENT DATE: 20201103
